FAERS Safety Report 16702297 (Version 1)
Quarter: 2019Q3

REPORT INFORMATION
  Report Type: Spontaneous
  Country: JP (occurrence: JP)
  Receive Date: 20190814
  Receipt Date: 20190814
  Transmission Date: 20191004
  Serious: Yes (Hospitalization, Other)
  Sender: FDA-Public Use
  Company Number: JP-JNJFOC-20190813579

PATIENT
  Sex: Male

DRUGS (1)
  1. RISPERDAL [Suspect]
     Active Substance: RISPERIDONE
     Indication: PRODUCT USED FOR UNKNOWN INDICATION
     Dosage: 3 OR 4 MG PER DAY
     Route: 048

REACTIONS (7)
  - Aphasia [Unknown]
  - Gait disturbance [Unknown]
  - Feeding disorder [Unknown]
  - Dementia [Unknown]
  - Dialysis [Unknown]
  - Enterococcal infection [Unknown]
  - Aggression [Unknown]
